FAERS Safety Report 4378519-1 (Version None)
Quarter: 2004Q2

REPORT INFORMATION
  Report Type: 
  Country: None (occurrence: None)
  Receive Date: 20040609
  Receipt Date: 20040527
  Transmission Date: 20050107
  Serious: Yes (Death)
  Sender: FDA-Public Use
  Company Number: JP-JNJFOC-20040503427

PATIENT
  Age: 77 Year
  Sex: Male

DRUGS (9)
  1. FENTANYL [Suspect]
     Indication: CANCER PAIN
     Dosage: 2.5 MG, 1 IN 72 HOUR, TRANSDERMAL
     Route: 062
     Dates: start: 20040315, end: 20040405
  2. AMICALIQ (AMICALIQ) [Concomitant]
  3. LANSOPRAZOLE [Concomitant]
  4. PREDNISOLONE [Concomitant]
  5. ZOLPIDEM TARTRATE [Concomitant]
  6. DICLOFENAC SODIUM [Concomitant]
  7. METOCLOPRAMIDE [Concomitant]
  8. SENNOSIDE (ALL OTHER THERAPEUTIC PRODUCTS) [Concomitant]
  9. MORPHINE [Concomitant]

REACTIONS (1)
  - DEATH [None]
